FAERS Safety Report 17388391 (Version 1)
Quarter: 2020Q1

REPORT INFORMATION
  Report Type: Spontaneous
  Country: NO (occurrence: NO)
  Receive Date: 20200206
  Receipt Date: 20200206
  Transmission Date: 20200409
  Serious: Yes (Other)
  Sender: FDA-Public Use
  Company Number: NO-SHIRE-NO202003947

PATIENT

DRUGS (3)
  1. CIRCADIN [Concomitant]
     Active Substance: MELATONIN
     Indication: PRODUCT USED FOR UNKNOWN INDICATION
  2. ELVANSE [Suspect]
     Active Substance: LISDEXAMFETAMINE DIMESYLATE
     Dosage: 54 MILLIGRAM, 1X/DAY:QD
     Route: 065
  3. ELVANSE [Suspect]
     Active Substance: LISDEXAMFETAMINE DIMESYLATE
     Indication: ATTENTION DEFICIT/HYPERACTIVITY DISORDER
     Dosage: 27 MILLIGRAM, 1X/DAY:QD
     Route: 065

REACTIONS (9)
  - Aggression [Recovered/Resolved]
  - Suicidal ideation [Recovered/Resolved]
  - Headache [Recovered/Resolved]
  - Decreased appetite [Recovered/Resolved]
  - Hallucination [Unknown]
  - Sleep disorder [Recovered/Resolved]
  - Palpitations [Recovered/Resolved]
  - Abdominal pain upper [Recovered/Resolved]
  - Depressed mood [Recovered/Resolved]
